FAERS Safety Report 20998488 (Version 1)
Quarter: 2022Q2

REPORT INFORMATION
  Report Type: Spontaneous
  Country: DE (occurrence: DE)
  Receive Date: 20220623
  Receipt Date: 20220623
  Transmission Date: 20220721
  Serious: Yes (Hospitalization)
  Sender: FDA-Public Use
  Company Number: DE-BoehringerIngelheim-2022-BI-177938

PATIENT
  Age: 82 Year
  Sex: Male

DRUGS (1)
  1. JARDIANCE [Suspect]
     Active Substance: EMPAGLIFLOZIN
     Indication: Cardiac failure
     Dosage: INTAKE FOR APPROXIMATELY 3 WEEKS
     Route: 048
     Dates: start: 202205, end: 2022

REACTIONS (4)
  - Infection [Recovered/Resolved]
  - Chills [Recovered/Resolved]
  - Dysuria [Recovered/Resolved]
  - Nausea [Recovered/Resolved]

NARRATIVE: CASE EVENT DATE: 20220501
